FAERS Safety Report 6919766-1 (Version None)
Quarter: 2010Q3

REPORT INFORMATION
  Report Type: 
  Country: None (occurrence: None)
  Receive Date: 20100811
  Receipt Date: 20100730
  Transmission Date: 20110219
  Serious: Yes (Hospitalization)
  Sender: FDA-Public Use
  Company Number: CA-ELI_LILLY_AND_COMPANY-CA201008000672

PATIENT
  Age: 79 Year
  Sex: Female

DRUGS (9)
  1. FORTEO [Suspect]
     Indication: OSTEOPOROSIS
     Dosage: 20 UG, DAILY (1/D)
     Dates: start: 20090720, end: 20100723
  2. PRILOSEC [Concomitant]
  3. PRIMAZOL [Concomitant]
  4. TRIDURAL [Concomitant]
  5. TYLENOL W/ CODEINE NO. 2 [Concomitant]
  6. TYLENOL (CAPLET) [Concomitant]
  7. STOOL SOFTENER [Concomitant]
  8. MACROBID [Concomitant]
  9. LORAZEPAM [Concomitant]

REACTIONS (3)
  - ABDOMINAL PAIN UPPER [None]
  - COLITIS [None]
  - DIARRHOEA [None]
